FAERS Safety Report 17645914 (Version 1)
Quarter: 2020Q2

REPORT INFORMATION
  Report Type: Other
  Country: CA (occurrence: CA)
  Receive Date: 20200408
  Receipt Date: 20200408
  Transmission Date: 20200713
  Serious: Yes (Hospitalization, Other)
  Sender: FDA-Public Use
  Company Number: CA-COVIS PHARMA B.V.-2020COV00149

PATIENT
  Age: 66 Year
  Sex: Female

DRUGS (15)
  1. OLODATEROL HYDROCHLORIDE;TIOTROPIUM BROMIDE [Suspect]
     Active Substance: OLODATEROL HYDROCHLORIDE\TIOTROPIUM BROMIDE MONOHYDRATE
     Indication: BRONCHIECTASIS
     Dosage: UNK DAILY DOSE
  2. OLODATEROL HYDROCHLORIDE;TIOTROPIUM BROMIDE [Suspect]
     Active Substance: OLODATEROL HYDROCHLORIDE\TIOTROPIUM BROMIDE MONOHYDRATE
     Indication: ASTHMA
     Dosage: UNK DAILY DOSE
  3. ALVESCO [Suspect]
     Active Substance: CICLESONIDE
     Indication: ASTHMA
     Dosage: UNK DAILY DOSE
  4. ALVESCO [Suspect]
     Active Substance: CICLESONIDE
     Dosage: UNK DAILY DOSE
  5. OLODATEROL HYDROCHLORIDE;TIOTROPIUM BROMIDE [Suspect]
     Active Substance: OLODATEROL HYDROCHLORIDE\TIOTROPIUM BROMIDE MONOHYDRATE
     Dosage: 2 DOSAGE UNITS, 1X/DAY
  6. OLODATEROL HYDROCHLORIDE;TIOTROPIUM BROMIDE [Suspect]
     Active Substance: OLODATEROL HYDROCHLORIDE\TIOTROPIUM BROMIDE MONOHYDRATE
     Dosage: UNK DAILY DOSE
  7. QVAR [Suspect]
     Active Substance: BECLOMETHASONE DIPROPIONATE
     Dosage: METERED DOSE (AEROSOL)
  8. AIROMIR [Suspect]
     Active Substance: ALBUTEROL SULFATE
     Indication: ASTHMA
     Dosage: 400 ?G, 1X/DAY
  9. QVAR [Suspect]
     Active Substance: BECLOMETHASONE DIPROPIONATE
     Dosage: METERED DOSE (AEROSOL)
  10. ADVAIR HFA [Suspect]
     Active Substance: FLUTICASONE PROPIONATE\SALMETEROL XINAFOATE
  11. AIROMIR [Suspect]
     Active Substance: ALBUTEROL SULFATE
     Dosage: 100 ?G, 1X/DAY
  12. ALVESCO [Suspect]
     Active Substance: CICLESONIDE
     Indication: BRONCHIECTASIS
     Dosage: AEROSOL, METERED DOSE
  13. ALVESCO [Suspect]
     Active Substance: CICLESONIDE
     Dosage: 4 DOSAGE UNITS, 1X/DAY
  14. ATROVENT [Suspect]
     Active Substance: IPRATROPIUM BROMIDE
     Indication: BRONCHIECTASIS
     Dosage: UNK
  15. PREDNISONE. [Suspect]
     Active Substance: PREDNISONE
     Indication: ASTHMA
     Dosage: 12.5 MG, 1X/DAY
     Route: 048

REACTIONS (7)
  - Asthma [Recovered/Resolved]
  - Productive cough [Recovered/Resolved]
  - Sinus polyp [Recovered/Resolved]
  - Bronchiectasis [Recovered/Resolved]
  - Dyspnoea exertional [Recovered/Resolved]
  - Small airways disease [Recovered/Resolved]
  - Bronchopulmonary aspergillosis [Recovered/Resolved]
